FAERS Safety Report 8341923-0 (Version None)
Quarter: 2012Q2

REPORT INFORMATION
  Report Type: 
  Country: None (occurrence: None)
  Receive Date: 20120507
  Receipt Date: 20120424
  Transmission Date: 20120825
  Serious: Yes (Death)
  Sender: FDA-Public Use
  Company Number: US-BAXTER-2012BAX003906

PATIENT
  Sex: Male

DRUGS (2)
  1. DIANEAL [Suspect]
     Route: 033
     Dates: end: 20120404
  2. DIANEAL [Suspect]
     Route: 033
     Dates: end: 20120404

REACTIONS (1)
  - MYOCARDIAL INFARCTION [None]
